FAERS Safety Report 11632081 (Version 1)
Quarter: 2015Q4

REPORT INFORMATION
  Report Type: Spontaneous
  Country: US (occurrence: US)
  Receive Date: 20151015
  Receipt Date: 20151015
  Transmission Date: 20160304
  Serious: Yes (Other)
  Sender: FDA-Public Use
  Company Number: US-SUN PHARMACEUTICAL INDUSTRIES LTD-2015US-104559

PATIENT
  Sex: Female

DRUGS (1)
  1. LETROZOLE. [Suspect]
     Active Substance: LETROZOLE
     Indication: BREAST CANCER
     Dosage: UNK, QD
     Route: 065

REACTIONS (8)
  - Pruritus [Unknown]
  - Depression [Unknown]
  - Lethargy [Unknown]
  - Disturbance in attention [Unknown]
  - Insomnia [Unknown]
  - Weight increased [Recovering/Resolving]
  - Mental disorder [Recovering/Resolving]
  - Nonspecific reaction [Unknown]
